FAERS Safety Report 9777675 (Version 5)
Quarter: 2014Q2

REPORT INFORMATION
  Report Type: Report from Study
  Country: CA (occurrence: CA)
  Receive Date: 20131223
  Receipt Date: 20140509
  Transmission Date: 20141212
  Serious: Yes (Hospitalization, Other)
  Sender: FDA-Public Use
  Company Number: CA-ROCHE-1273096

PATIENT
  Age: 62 Year
  Sex: Female
  Weight: 52 kg

DRUGS (11)
  1. ACTEMRA [Suspect]
     Indication: RHEUMATOID ARTHRITIS
     Route: 042
     Dates: start: 20130809
  2. ACTEMRA [Suspect]
     Route: 042
     Dates: start: 20131212
  3. ACTEMRA [Suspect]
     Route: 042
     Dates: start: 20140207
  4. ACTEMRA [Suspect]
     Route: 042
     Dates: start: 20140403
  5. TYLENOL [Suspect]
     Indication: HEADACHE
     Route: 065
  6. PERIACTINE [Concomitant]
  7. PREDNISONE [Concomitant]
     Route: 065
     Dates: end: 20140308
  8. RAMIPRIL [Concomitant]
  9. IMOVANE [Concomitant]
  10. METAMUCIL [Concomitant]
  11. AMITRIPTYLINE [Concomitant]

REACTIONS (11)
  - Electrolyte imbalance [Unknown]
  - Hypertension [Recovered/Resolved]
  - Palpitations [Not Recovered/Not Resolved]
  - Abdominal pain upper [Recovered/Resolved]
  - Headache [Unknown]
  - Upper respiratory tract infection [Recovered/Resolved]
  - Drug ineffective [Unknown]
  - Malaise [Unknown]
  - Raynaud^s phenomenon [Recovering/Resolving]
  - Rheumatoid arthritis [Unknown]
  - Arthralgia [Not Recovered/Not Resolved]
